FAERS Safety Report 7035641-9 (Version None)
Quarter: 2010Q4

REPORT INFORMATION
  Report Type: 
  Country: None (occurrence: None)
  Receive Date: 20101008
  Receipt Date: 20101001
  Transmission Date: 20110411
  Serious: Yes (Other)
  Sender: FDA-Public Use
  Company Number: JP-JNJFOC-20101001437

PATIENT
  Age: 33 Year
  Sex: Female

DRUGS (4)
  1. RISPERDAL [Suspect]
     Indication: ANXIETY
     Route: 048
  2. RITODRINE HYDROCHLORIDE [Interacting]
     Indication: PRODUCT USED FOR UNKNOWN INDICATION
     Route: 065
  3. MAGNESIUM SULFATE [Interacting]
     Indication: PRODUCT USED FOR UNKNOWN INDICATION
     Route: 065
  4. LIDOCAINE [Interacting]
     Indication: LOCAL ANAESTHESIA
     Route: 008

REACTIONS (8)
  - DRUG EXPOSURE DURING PREGNANCY [None]
  - DRUG INTERACTION [None]
  - INFECTION [None]
  - INJECTION SITE PAIN [None]
  - INJECTION SITE WARMTH [None]
  - PYREXIA [None]
  - SWEAT GLAND DISORDER [None]
  - TACHYCARDIA [None]
